FAERS Safety Report 8780379 (Version 1)
Quarter: 2012Q4

REPORT INFORMATION
  Report Type: Spontaneous
  Country: US (occurrence: None)
  Receive Date: 20120905
  Receipt Date: 20120905
  Transmission Date: 20130627
  Serious: No
  Sender: FDA-Public Use
  Company Number: None

PATIENT
  Age: 38 Year
  Sex: Male
  Weight: 83.92 kg

DRUGS (1)
  1. NUCYNTA [Suspect]
     Dosage: 4 TIMES DAILY
     Route: 048

REACTIONS (6)
  - Nausea [None]
  - Vomiting [None]
  - Chills [None]
  - Somnolence [None]
  - Malaise [None]
  - Impaired driving ability [None]
